FAERS Safety Report 21027858 (Version 1)
Quarter: 2022Q2

REPORT INFORMATION
  Report Type: Spontaneous
  Country: JP (occurrence: JP)
  Receive Date: 20220630
  Receipt Date: 20220630
  Transmission Date: 20220720
  Serious: Yes (Other)
  Sender: FDA-Public Use
  Company Number: JP-MSD-M2022-08597

PATIENT
  Age: 7 Decade

DRUGS (2)
  1. KEYTRUDA [Suspect]
     Active Substance: PEMBROLIZUMAB
     Indication: Oesophageal carcinoma
     Dosage: 400 MILLIGRAM, EVERY 6 WEEKS
     Route: 041
     Dates: start: 202111, end: 202112
  2. KEYTRUDA [Suspect]
     Active Substance: PEMBROLIZUMAB
     Dosage: UNK, Q3W
     Route: 041
     Dates: start: 2022, end: 202206

REACTIONS (2)
  - Myelosuppression [Unknown]
  - Skin disorder [Recovered/Resolved]

NARRATIVE: CASE EVENT DATE: 20211201
